APPROVED DRUG PRODUCT: HYDROCORTISONE
Active Ingredient: HYDROCORTISONE
Strength: 10MG
Dosage Form/Route: TABLET;ORAL
Application: A217160 | Product #002 | TE Code: AB
Applicant: HIBROW HEALTHCARE PRIVATE LTD
Approved: Nov 25, 2024 | RLD: No | RS: No | Type: RX